FAERS Safety Report 16803730 (Version 1)
Quarter: 2019Q3

REPORT INFORMATION
  Report Type: Spontaneous
  Country: SE (occurrence: SE)
  Receive Date: 20190913
  Receipt Date: 20190913
  Transmission Date: 20191005
  Serious: Yes (Hospitalization)
  Sender: FDA-Public Use
  Company Number: SE-TEVA-2019-SE-1106092

PATIENT
  Age: 31 Year
  Sex: Male

DRUGS (2)
  1. LERGIGAN (PROMETHAZINE HYDROCHLORIDE) [Suspect]
     Active Substance: PROMETHAZINE HYDROCHLORIDE
     Dosage: HAS A HALF EMPTY CAN OF LERGIGAN
     Route: 048
     Dates: start: 20190121, end: 20190121
  2. MIRTAZAPINE. [Suspect]
     Active Substance: MIRTAZAPINE
     Dosage: AT LEAST ONE MAP WAS FOUND AT HOME
     Route: 048
     Dates: start: 20190121, end: 20190121

REACTIONS (3)
  - Respiratory arrest [Recovering/Resolving]
  - Overdose [Recovering/Resolving]
  - Loss of consciousness [Recovering/Resolving]

NARRATIVE: CASE EVENT DATE: 20190121
